FAERS Safety Report 14704401 (Version 1)
Quarter: 2018Q2

REPORT INFORMATION
  Report Type: Spontaneous
  Country: US (occurrence: US)
  Receive Date: 20180402
  Receipt Date: 20180402
  Transmission Date: 20180711
  Serious: No
  Sender: FDA-Public Use
  Company Number: US-GLAXOSMITHKLINE-US2018053916

PATIENT
  Age: 76 Year
  Sex: Female

DRUGS (6)
  1. BREO ELLIPTA [Suspect]
     Active Substance: FLUTICASONE FUROATE\VILANTEROL TRIFENATATE
     Indication: ASTHMA
     Dosage: 1 PUFF(S), QD
     Route: 055
     Dates: start: 20180326
  2. ZAFIRLUKAST. [Concomitant]
     Active Substance: ZAFIRLUKAST
  3. VERAPAMIL ER [Concomitant]
     Active Substance: VERAPAMIL HYDROCHLORIDE
  4. TRIAMTERENE. [Concomitant]
     Active Substance: TRIAMTERENE
  5. METHIMAZOLE. [Concomitant]
     Active Substance: METHIMAZOLE
  6. PROAIR HFA [Concomitant]
     Active Substance: ALBUTEROL SULFATE

REACTIONS (3)
  - Dysphonia [Unknown]
  - Headache [Unknown]
  - Drug dose omission [Unknown]

NARRATIVE: CASE EVENT DATE: 20180328
